FAERS Safety Report 21213617 (Version 10)
Quarter: 2023Q2

REPORT INFORMATION
  Report Type: Spontaneous
  Country: ES (occurrence: ES)
  Receive Date: 20220816
  Receipt Date: 20230419
  Transmission Date: 20230722
  Serious: Yes (Life-Threatening, Hospitalization, Other)
  Sender: FDA-Public Use
  Company Number: ES-GT-20220909

PATIENT
  Age: 52 Year
  Sex: Male

DRUGS (33)
  1. DARUNAVIR [Suspect]
     Active Substance: DARUNAVIR
     Indication: HIV antibody
     Dosage: 600 MG, 2X PER DAY
     Route: 065
     Dates: start: 20100824
  2. DARUNAVIR [Suspect]
     Active Substance: DARUNAVIR
     Indication: HIV infection
     Route: 065
     Dates: start: 20140527
  3. DARUNAVIR [Suspect]
     Active Substance: DARUNAVIR
     Indication: HIV infection
  4. QUETIAPINE [Interacting]
     Active Substance: QUETIAPINE
     Indication: Schizophrenia
     Dosage: 300 MG, 2X PER DAY
     Route: 065
     Dates: start: 20170426
  5. CLOTHIAPINE [Suspect]
     Active Substance: CLOTHIAPINE
     Indication: Product used for unknown indication
     Route: 065
  6. FENOFIBRATE [Concomitant]
     Active Substance: FENOFIBRATE
     Indication: Hyperlipidaemia
     Dosage: 145 MG, 1X PER DAY
     Route: 065
     Dates: start: 20200420
  7. FENOFIBRATE [Concomitant]
     Active Substance: FENOFIBRATE
     Indication: Pain
     Dosage: 145 MG, 1X PER DAY
     Route: 065
     Dates: start: 20211015
  8. FENOFIBRATE [Concomitant]
     Active Substance: FENOFIBRATE
     Indication: Hyperlipidaemia
  9. DULAGLUTIDE [Concomitant]
     Active Substance: DULAGLUTIDE
     Indication: Diabetes prophylaxis
     Dosage: 1.5 MG 1 X PER WEEK
     Route: 065
     Dates: start: 20190529
  10. DULAGLUTIDE [Concomitant]
     Active Substance: DULAGLUTIDE
     Route: 065
     Dates: start: 20190313
  11. ETRAVIRINE [Concomitant]
     Active Substance: ETRAVIRINE
     Indication: HIV infection
     Dosage: 200 MG, 1X PER DAY
     Route: 065
     Dates: start: 20140527
  12. ETRAVIRINE [Concomitant]
     Active Substance: ETRAVIRINE
     Indication: Diabetes mellitus
  13. ETRAVIRINE [Concomitant]
     Active Substance: ETRAVIRINE
     Indication: HIV infection
  14. CLORAZEPIC ACID [Concomitant]
     Active Substance: CLORAZEPIC ACID
     Indication: Generalised anxiety disorder
     Dosage: 15 MG/ 4.5H
     Route: 065
     Dates: start: 20190221
  15. INSULIN ASPART [Concomitant]
     Active Substance: INSULIN ASPART
     Indication: Diabetes mellitus
     Dosage: 10 UI, EVERY 8 HOURS
     Route: 065
     Dates: start: 20200707
  16. INSULIN ASPART [Concomitant]
     Active Substance: INSULIN ASPART
     Indication: HIV infection
     Route: 065
     Dates: start: 20140527
  17. INSULIN ASPART [Concomitant]
     Active Substance: INSULIN ASPART
     Indication: Diabetes prophylaxis
  18. LORMETAZEPAM [Concomitant]
     Active Substance: LORMETAZEPAM
     Indication: Hypnotherapy
     Dosage: 2 MG, 1X PER DAY
     Route: 065
     Dates: start: 20171216
  19. LORMETAZEPAM [Concomitant]
     Active Substance: LORMETAZEPAM
     Indication: Ulcer
     Route: 065
     Dates: start: 20191127
  20. ROSUVASTATIN [Concomitant]
     Active Substance: ROSUVASTATIN
     Indication: Hyperlipidaemia
     Dosage: 5 MG, 1X PER DAY
     Route: 065
     Dates: start: 20180511
  21. ROSUVASTATIN [Concomitant]
     Active Substance: ROSUVASTATIN
     Indication: Hyperlipidaemia
     Route: 065
     Dates: start: 20200429
  22. ROSUVASTATIN [Concomitant]
     Active Substance: ROSUVASTATIN
     Indication: Hyperlipidaemia
  23. METAMIZOLE [Concomitant]
     Active Substance: METAMIZOLE
     Indication: Analgesic therapy
     Dosage: 575 MG, 3X PER DAY
     Route: 065
     Dates: start: 20210707
  24. METAMIZOLE [Concomitant]
     Active Substance: METAMIZOLE
     Indication: Anxiolytic therapy
     Route: 065
     Dates: start: 20190221
  25. METAMIZOLE [Concomitant]
     Active Substance: METAMIZOLE
     Indication: Analgesic therapy
  26. ACETAMINOPHEN [Concomitant]
     Active Substance: ACETAMINOPHEN
     Indication: Analgesic therapy
     Dosage: 1 G, 2X PER DAY
     Route: 065
     Dates: start: 20210721
  27. ACETAMINOPHEN [Concomitant]
     Active Substance: ACETAMINOPHEN
     Indication: Pain
     Route: 065
     Dates: start: 20150529
  28. ACETAMINOPHEN [Concomitant]
     Active Substance: ACETAMINOPHEN
     Indication: Diabetes mellitus
  29. INSULIN GLARGINE [Concomitant]
     Active Substance: INSULIN GLARGINE
     Indication: Diabetes mellitus
     Dosage: 60 IU, 1X PER DAY
     Route: 065
     Dates: start: 20190527
  30. LOSARTAN [Concomitant]
     Active Substance: LOSARTAN
     Indication: Hypertension
     Dosage: 100 MG, 1X PER DAY
     Route: 065
     Dates: start: 20181013
  31. OMEPRAZOLE [Concomitant]
     Active Substance: OMEPRAZOLE
     Indication: Ulcer
     Dosage: 40 MG, 1X PER DAY
     Route: 065
     Dates: start: 20191127
  32. ZOLPIDEM [Concomitant]
     Active Substance: ZOLPIDEM TARTRATE
     Indication: Hypnotherapy
     Dosage: 10 MG, 1X PER DAY
     Route: 065
     Dates: start: 20190313
  33. GABAPENTIN [Concomitant]
     Active Substance: GABAPENTIN
     Indication: Analgesic therapy
     Dates: start: 20211015

REACTIONS (15)
  - Nervousness [Recovered/Resolved]
  - Tachycardia [Recovered/Resolved]
  - Confusional state [Recovered/Resolved]
  - Agitation [Recovered/Resolved]
  - Drug interaction [Recovered/Resolved]
  - Drug level increased [Recovered/Resolved]
  - Insomnia [Recovered/Resolved]
  - Insomnia [Recovered/Resolved]
  - Confusional state [Recovered/Resolved]
  - Tachycardia [Recovered/Resolved]
  - Restlessness [Recovered/Resolved]
  - Condition aggravated [Recovered/Resolved]
  - Drug interaction [Recovered/Resolved]
  - Nervousness [Recovered/Resolved]
  - Nervousness [Recovered/Resolved]
